FAERS Safety Report 16733472 (Version 1)
Quarter: 2019Q3

REPORT INFORMATION
  Report Type: Spontaneous
  Country: DE (occurrence: DE)
  Receive Date: 20190823
  Receipt Date: 20190823
  Transmission Date: 20191005
  Serious: Yes (Hospitalization)
  Sender: FDA-Public Use
  Company Number: DE-TEVA-2019-DE-1095389

PATIENT
  Age: 66 Year
  Sex: Male

DRUGS (10)
  1. METAMIZOL [Concomitant]
     Active Substance: METAMIZOLE SODIUM
     Dosage: 500 MG, 1-1-1-0
  2. METOPROLOL. [Suspect]
     Active Substance: METOPROLOL
     Dosage: 95 MG, 1-0-0.5-0
  3. FUROSEMID [Concomitant]
     Active Substance: FUROSEMIDE
     Dosage: 40 MG, 2-1-0-0
  4. SIMVASTATIN. [Concomitant]
     Active Substance: SIMVASTATIN
     Dosage: 40 MG, 0-0-1-0
  5. ACTRAPHANE [Concomitant]
     Active Substance: INSULIN HUMAN
     Dosage: NK IE, 54-0-20-0, 30/70
  6. XIPAMID [Concomitant]
     Active Substance: XIPAMIDE
     Dosage: 10 MG, 0.5-0-0-0
  7. ASS 100 [Concomitant]
     Active Substance: ASPIRIN
     Dosage: 100 MG, 0-1-0-0
  8. RAMIPRIL. [Concomitant]
     Active Substance: RAMIPRIL
     Dosage: 2.5 MG, 1-0-0-0
  9. TAMSULOSIN [Concomitant]
     Active Substance: TAMSULOSIN
     Dosage: 0.4 MG, 1-0-0-0
  10. FENTANYL. [Concomitant]
     Active Substance: FENTANYL
     Dosage: 100 MICROGRAM / H, CHANGE EVERY 3D, PATCH TRANSDERMAL
     Route: 062

REACTIONS (3)
  - Product prescribing error [Unknown]
  - Dyspnoea [Unknown]
  - Condition aggravated [Unknown]
